FAERS Safety Report 17102186 (Version 1)
Quarter: 2019Q4

REPORT INFORMATION
  Report Type: Report from Study
  Country: KR (occurrence: KR)
  Receive Date: 20191202
  Receipt Date: 20191202
  Transmission Date: 20200122
  Serious: Yes (Other)
  Sender: FDA-Public Use
  Company Number: KR-JNJFOC-20191133187

PATIENT

DRUGS (1)
  1. DARZALEX [Suspect]
     Active Substance: DARATUMUMAB
     Indication: PLASMA CELL MYELOMA
     Route: 042

REACTIONS (17)
  - Myalgia [Unknown]
  - Chills [Unknown]
  - Thrombocytopenia [Unknown]
  - Anaemia [Unknown]
  - Insomnia [Unknown]
  - Upper respiratory tract infection [Unknown]
  - Sepsis [Unknown]
  - Large intestine infection [Unknown]
  - Infusion related reaction [Unknown]
  - Dyspnoea [Unknown]
  - Lower respiratory tract infection [Unknown]
  - Haemorrhage [Unknown]
  - Asthenia [Unknown]
  - Neutropenia [Unknown]
  - Tumour lysis syndrome [Unknown]
  - Hepatic enzyme increased [Unknown]
  - Diarrhoea [Unknown]
